FAERS Safety Report 7640887-2 (Version None)
Quarter: 2011Q3

REPORT INFORMATION
  Report Type: 
  Country: None (occurrence: None)
  Receive Date: 20110728
  Receipt Date: 20110728
  Transmission Date: 20111222
  Serious: Yes (Death, Hospitalization)
  Sender: FDA-Public Use
  Company Number: None

PATIENT
  Age: 17 Year
  Sex: Male
  Weight: 74.842 kg

DRUGS (2)
  1. LAMICTAL [Suspect]
     Indication: DISTURBANCE IN ATTENTION
  2. LAMICTAL [Suspect]
     Indication: MOOD ALTERED

REACTIONS (1)
  - STEVENS-JOHNSON SYNDROME [None]
